FAERS Safety Report 7574560-6 (Version None)
Quarter: 2011Q2

REPORT INFORMATION
  Report Type: 
  Country: None (occurrence: None)
  Receive Date: 20110627
  Receipt Date: 20110517
  Transmission Date: 20111010
  Serious: No
  Sender: FDA-Public Use
  Company Number: US-BAYER-2011-043989

PATIENT

DRUGS (2)
  1. IBUPROFEN [Concomitant]
     Dosage: 5 DF, UNK
     Route: 048
  2. ALEVE (CAPLET) [Suspect]
     Dosage: UNK
     Route: 048

REACTIONS (2)
  - NO ADVERSE EVENT [None]
  - ABDOMINAL PAIN UPPER [None]
